FAERS Safety Report 8086273-5 (Version None)
Quarter: 2012Q1

REPORT INFORMATION
  Report Type: 
  Country: None (occurrence: None)
  Receive Date: 20120128
  Receipt Date: 20110427
  Transmission Date: 20120608
  Serious: No
  Sender: FDA-Public Use
  Company Number: US-ABBOTT-11P-163-0722386-00

PATIENT
  Sex: Female

DRUGS (3)
  1. HUMIRA [Suspect]
     Indication: CROHN'S DISEASE
     Dates: start: 20100601
  2. PROPANADOL [Concomitant]
     Indication: HYPERTENSION
  3. CLONODIDE HTZ [Concomitant]
     Indication: HYPERTENSION

REACTIONS (2)
  - RASH GENERALISED [None]
  - RASH PRURITIC [None]
